FAERS Safety Report 17316094 (Version 1)
Quarter: 2020Q1

REPORT INFORMATION
  Report Type: Spontaneous
  Country: SE (occurrence: SE)
  Receive Date: 20200124
  Receipt Date: 20200124
  Transmission Date: 20200409
  Serious: Yes (Other)
  Sender: FDA-Public Use
  Company Number: SE-MYLANLABS-2020M1007022

PATIENT
  Age: 52 Year
  Sex: Female

DRUGS (1)
  1. ACETYLCYSTEINE. [Suspect]
     Active Substance: ACETYLCYSTEINE
     Indication: PRODUCTIVE COUGH
     Dosage: 200 MILLIGRAM, TOTAL
     Route: 048
     Dates: start: 20191011, end: 20191011

REACTIONS (3)
  - Pruritus [Recovered/Resolved]
  - Erythema [Recovered/Resolved]
  - Peripheral swelling [Recovered/Resolved]

NARRATIVE: CASE EVENT DATE: 20191011
